FAERS Safety Report 12547495 (Version 1)
Quarter: 2016Q3

REPORT INFORMATION
  Report Type: Spontaneous
  Country: FR (occurrence: FR)
  Receive Date: 20160712
  Receipt Date: 20160712
  Transmission Date: 20161109
  Serious: Yes (Hospitalization)
  Sender: FDA-Public Use
  Company Number: FR-ROCHE-1791718

PATIENT
  Age: 66 Year
  Sex: Male
  Weight: 70 kg

DRUGS (14)
  1. LASILIX [Concomitant]
     Active Substance: FUROSEMIDE
     Dosage: LONG-TERM TREATMENT
     Route: 048
  2. MABTHERA [Suspect]
     Active Substance: RITUXIMAB
     Indication: B-CELL LYMPHOMA
     Route: 042
     Dates: start: 201511
  3. LOVENOX [Concomitant]
     Active Substance: ENOXAPARIN SODIUM
     Dosage: LONG-TERM TREATMENT; 4000 IU ANTI-XA/0.4 ML
     Route: 058
  4. ZELITREX [Concomitant]
     Active Substance: VALACYCLOVIR HYDROCHLORIDE
     Dosage: LONG-TERM TREATMENT
     Route: 048
  5. CYCLOPHOSPHAMIDE. [Suspect]
     Active Substance: CYCLOPHOSPHAMIDE
     Indication: B-CELL LYMPHOMA
     Route: 042
     Dates: start: 201511
  6. NOVORAPID [Concomitant]
     Active Substance: INSULIN ASPART
     Dosage: LONG-TERM TREATMENT
     Route: 058
  7. PROPRANOLOL [Concomitant]
     Active Substance: PROPRANOLOL\PROPRANOLOL HYDROCHLORIDE
     Dosage: LONG-TERM TREATMENT
     Route: 048
  8. VINCRISTINE [Suspect]
     Active Substance: VINCRISTINE
     Indication: B-CELL LYMPHOMA
     Route: 042
     Dates: start: 201511
  9. INEXIUM [Concomitant]
     Active Substance: ESOMEPRAZOLE
     Dosage: LONG-TERM TREATMENT
     Route: 048
  10. ALDACTONE [Concomitant]
     Active Substance: SPIRONOLACTONE
     Dosage: LONG-TERM TREATMENT
     Route: 048
  11. DOXORUBICINE [Suspect]
     Active Substance: DOXORUBICIN
     Indication: B-CELL LYMPHOMA
     Route: 042
     Dates: start: 201511
  12. ARANESP [Concomitant]
     Active Substance: DARBEPOETIN ALFA
     Dosage: LONG-TERM TREATMENT
     Route: 065
  13. TRAMADOL. [Concomitant]
     Active Substance: TRAMADOL
     Dosage: LONG-TERM TREATMENT
     Route: 048
  14. LANTUS [Concomitant]
     Active Substance: INSULIN GLARGINE
     Dosage: LONG-TERM TREATMENT
     Route: 058

REACTIONS (3)
  - Hypovolaemic shock [Not Recovered/Not Resolved]
  - Decreased appetite [Not Recovered/Not Resolved]
  - Weight decreased [Not Recovered/Not Resolved]

NARRATIVE: CASE EVENT DATE: 201511
